FAERS Safety Report 21581531 (Version 1)
Quarter: 2022Q4

REPORT INFORMATION
  Report Type: Spontaneous
  Country: US (occurrence: US)
  Receive Date: 20221111
  Receipt Date: 20221111
  Transmission Date: 20230113
  Serious: No
  Sender: FDA-Public Use
  Company Number: US-SA-2022SA460892

PATIENT
  Age: 28 Year
  Sex: Male

DRUGS (1)
  1. ALPROLIX [Suspect]
     Active Substance: EFTRENONACOG ALFA
     Dosage: 3995 U, QW (PRN)
     Route: 065

REACTIONS (1)
  - Vasectomy [Unknown]

NARRATIVE: CASE EVENT DATE: 20221028
